FAERS Safety Report 6152905-1 (Version None)
Quarter: 2009Q2

REPORT INFORMATION
  Report Type: 
  Country: None (occurrence: None)
  Receive Date: 20090413
  Receipt Date: 20090331
  Transmission Date: 20091009
  Serious: Yes (Disabling, Other)
  Sender: FDA-Public Use
  Company Number: US-PFIZER INC-2009191703

PATIENT
  Sex: Female
  Weight: 113 kg

DRUGS (2)
  1. MEDROXYPROGESTERONE ACETATE AND MEDROXYPROGESTERONE [Suspect]
     Indication: HORMONE REPLACEMENT THERAPY
     Dosage: UNK
     Dates: start: 20020101, end: 20030101
  2. ESTRADIOL [Suspect]
     Indication: HORMONE REPLACEMENT THERAPY
     Dosage: UNK
     Dates: start: 20020101, end: 20030101

REACTIONS (1)
  - BREAST CANCER FEMALE [None]
